FAERS Safety Report 19619169 (Version 1)
Quarter: 2021Q3

REPORT INFORMATION
  Report Type: Spontaneous
  Country: US (occurrence: US)
  Receive Date: 20210727
  Receipt Date: 20210727
  Transmission Date: 20211014
  Serious: Yes (Hospitalization)
  Sender: FDA-Public Use
  Company Number: US-ROCHE-2769162

PATIENT
  Sex: Female

DRUGS (2)
  1. TUKYSA [Suspect]
     Active Substance: TUCATINIB
     Indication: BREAST CANCER FEMALE
     Route: 065
  2. CAPECITABINE. [Suspect]
     Active Substance: CAPECITABINE
     Indication: PRODUCT USED FOR UNKNOWN INDICATION
     Route: 048

REACTIONS (9)
  - Mean platelet volume decreased [Unknown]
  - Infection [Unknown]
  - Dry skin [Unknown]
  - Fatigue [Unknown]
  - Liver disorder [Unknown]
  - Platelet count increased [Unknown]
  - Diarrhoea [Unknown]
  - Cushingoid [Unknown]
  - Haemoglobin decreased [Unknown]
